APPROVED DRUG PRODUCT: ONGENTYS
Active Ingredient: OPICAPONE
Strength: 50MG
Dosage Form/Route: CAPSULE;ORAL
Application: N212489 | Product #002
Applicant: AMNEAL PHARMACEUTICALS LLC
Approved: Apr 24, 2020 | RLD: Yes | RS: Yes | Type: RX

PATENTS:
Patent 9745290 | Expires: Oct 10, 2027
Patent 9630955 | Expires: Dec 12, 2032
Patent 9550759 | Expires: Jul 26, 2026
Patent 9550759 | Expires: Jul 26, 2026
Patent 9550759 | Expires: Jul 26, 2026
Patent 8524746 | Expires: Jul 14, 2029
Patent 8168793 | Expires: Apr 2, 2029
Patent 10583130 | Expires: Mar 31, 2030
Patent 12129247 | Expires: Jan 11, 2032
Patent 8907099 | Expires: May 12, 2027
Patent 10071085 | Expires: Mar 31, 2030